FAERS Safety Report 4319953-5 (Version None)
Quarter: 2004Q1

REPORT INFORMATION
  Report Type: 
  Country: None (occurrence: None)
  Receive Date: 20040317
  Receipt Date: 20040301
  Transmission Date: 20041129
  Serious: Yes (Death, Hospitalization)
  Sender: FDA-Public Use
  Company Number: A-US2002-00919

PATIENT
  Age: 50 Year
  Sex: Male

DRUGS (11)
  1. TRACLEER [Suspect]
     Indication: PULMONARY HYPERTENSION
     Dosage: SEE IMAGE
     Route: 048
     Dates: start: 20011220, end: 20020114
  2. TRACLEER [Suspect]
     Indication: PULMONARY HYPERTENSION
     Dosage: SEE IMAGE
     Route: 048
     Dates: start: 20020115, end: 20020928
  3. TRACLEER [Suspect]
     Indication: PULMONARY HYPERTENSION
     Dosage: SEE IMAGE
     Route: 048
     Dates: start: 20020928, end: 20021016
  4. SYNTHROID [Concomitant]
  5. COUMADIN [Concomitant]
  6. LASIX [Concomitant]
  7. POTASSIUM (POTASSIUM) [Concomitant]
  8. MULTI-VITAMINS [Concomitant]
  9. AMBIEN [Concomitant]
  10. ZAROXOLYN [Concomitant]
  11. OXYGEN (OXYGEN) [Concomitant]

REACTIONS (12)
  - ARRHYTHMIA [None]
  - ARRHYTHMIA SUPRAVENTRICULAR [None]
  - ATRIAL BIGEMINY [None]
  - ATRIAL FIBRILLATION [None]
  - FLUID RETENTION [None]
  - OESOPHAGEAL DISORDER [None]
  - PALPITATIONS [None]
  - PULMONARY HYPERTENSION [None]
  - SELF-MEDICATION [None]
  - SUPRAVENTRICULAR EXTRASYSTOLES [None]
  - TREATMENT NONCOMPLIANCE [None]
  - VENTRICULAR TACHYCARDIA [None]
